FAERS Safety Report 8258742-6 (Version None)
Quarter: 2012Q2

REPORT INFORMATION
  Report Type: 
  Country: None (occurrence: None)
  Receive Date: 20120404
  Receipt Date: 20120404
  Transmission Date: 20120825
  Serious: Yes (Hospitalization)
  Sender: FDA-Public Use
  Company Number: None

PATIENT
  Age: 27 Year
  Sex: Female
  Weight: 63.4 kg

DRUGS (1)
  1. LAMOTRGINE [Suspect]

REACTIONS (4)
  - VAGINAL HAEMORRHAGE [None]
  - BLOOD URINE PRESENT [None]
  - DYSPHAGIA [None]
  - STEVENS-JOHNSON SYNDROME [None]
